FAERS Safety Report 20650039 (Version 1)
Quarter: 2022Q1

REPORT INFORMATION
  Report Type: Spontaneous
  Country: FR (occurrence: FR)
  Receive Date: 20220329
  Receipt Date: 20220329
  Transmission Date: 20220424
  Serious: Yes (Other)
  Sender: FDA-Public Use
  Company Number: None

PATIENT
  Age: 76 Year
  Sex: Female
  Weight: 111 kg

DRUGS (14)
  1. OXYCODONE HYDROCHLORIDE [Suspect]
     Active Substance: OXYCODONE HYDROCHLORIDE
     Indication: Pain
     Dosage: 5 MG, UNK
     Route: 065
     Dates: start: 20211202, end: 20211227
  2. SACCHAROMYCES CEREVISIAE [Suspect]
     Active Substance: SACCHAROMYCES CEREVISIAE
     Indication: Diarrhoea
     Dosage: 200 MG, DAILY
     Route: 065
     Dates: start: 20211216, end: 20211230
  3. MONTMORILLONITE [Suspect]
     Active Substance: MONTMORILLONITE
     Indication: Diarrhoea
     Dosage: 3 G, DAILY
     Route: 065
     Dates: start: 20211216, end: 20220110
  4. RIFAMPIN [Suspect]
     Active Substance: RIFAMPIN
     Indication: Infection
     Dosage: 1200 MG, DAILY
     Route: 065
     Dates: start: 20211206, end: 20211222
  5. ECONAZOLE [Suspect]
     Active Substance: ECONAZOLE
     Indication: Fungal skin infection
     Dosage: 2 DF, DAILY
     Route: 065
     Dates: start: 20211210, end: 20220113
  6. AMOXICILLIN [Suspect]
     Active Substance: AMOXICILLIN
     Indication: Infection
     Dosage: 10 G, DAILY
     Route: 065
     Dates: start: 20211205, end: 20211222
  7. IRBESARTAN [Concomitant]
     Active Substance: IRBESARTAN
     Indication: Product used for unknown indication
     Dosage: UNK
     Route: 065
  8. APIXABAN [Concomitant]
     Active Substance: APIXABAN
     Indication: Product used for unknown indication
     Dosage: UNK
     Route: 065
  9. HYDROCHLOROTHIAZIDE [Concomitant]
     Active Substance: HYDROCHLOROTHIAZIDE
     Indication: Product used for unknown indication
     Dosage: UNK
     Route: 065
  10. FUROSEMIDE [Concomitant]
     Active Substance: FUROSEMIDE
     Indication: Product used for unknown indication
     Dosage: UNK
     Route: 065
  11. BISOPROLOL                         /00802602/ [Concomitant]
     Indication: Product used for unknown indication
     Dosage: UNK
     Route: 065
  12. PANTOPRAZOLE [Concomitant]
     Active Substance: PANTOPRAZOLE
     Indication: Product used for unknown indication
     Dosage: UNK
     Route: 065
  13. CHOLECALCIFEROL [Concomitant]
     Active Substance: CHOLECALCIFEROL
     Indication: Product used for unknown indication
     Dosage: UNK
     Route: 065
  14. ACETAMINOPHEN [Concomitant]
     Active Substance: ACETAMINOPHEN
     Indication: Product used for unknown indication
     Dosage: UNK
     Route: 065

REACTIONS (2)
  - Eosinophilia [Recovered/Resolved]
  - Urticaria [Recovered/Resolved]

NARRATIVE: CASE EVENT DATE: 20211220
